FAERS Safety Report 19990928 (Version 5)
Quarter: 2021Q4

REPORT INFORMATION
  Report Type: Report from Study
  Country: CZ (occurrence: None)
  Receive Date: 20211025
  Receipt Date: 20211118
  Transmission Date: 20220303
  Serious: Yes (Hospitalization)
  Sender: FDA-Public Use
  Company Number: CZ-EISAI MEDICAL RESEARCH-EC-2021-101894

PATIENT
  Age: 17 Year
  Sex: Female
  Weight: 38.8 kg

DRUGS (11)
  1. LENVATINIB [Suspect]
     Active Substance: LENVATINIB
     Indication: Spindle cell sarcoma
     Route: 048
     Dates: start: 20210531, end: 20211014
  2. BIOPRON FORTE [Concomitant]
     Dates: start: 20210309
  3. CYPROHEPTADINE HYDROCHLORIDE [Concomitant]
     Active Substance: CYPROHEPTADINE HYDROCHLORIDE
     Dates: start: 20210525
  4. MEGACE [Concomitant]
     Active Substance: MEGESTROL ACETATE
     Dates: start: 20210916
  5. CEFUROXIME [Concomitant]
     Active Substance: CEFUROXIME
     Dates: start: 20210921
  6. FAMOTIDINE [Concomitant]
     Active Substance: FAMOTIDINE
     Dates: start: 20210921
  7. VENTOLIN [Concomitant]
     Active Substance: ALBUTEROL SULFATE
     Dates: start: 20210921
  8. MAGNESIUM [Concomitant]
     Active Substance: MAGNESIUM
     Dates: start: 20200331
  9. POTASSIUM [Concomitant]
     Active Substance: POTASSIUM
     Dates: start: 20210510
  10. RAMIPRIL [Concomitant]
     Active Substance: RAMIPRIL
     Dates: start: 20210727
  11. LEVOTHYROXINE SODIUM [Concomitant]
     Active Substance: LEVOTHYROXINE SODIUM
     Dates: start: 20210727

REACTIONS (2)
  - Bronchopulmonary aspergillosis [Recovering/Resolving]
  - Pneumothorax [Recovered/Resolved]

NARRATIVE: CASE EVENT DATE: 20211015
